FAERS Safety Report 14360986 (Version 2)
Quarter: 2018Q4

REPORT INFORMATION
  Report Type: Report from Study
  Country: BR (occurrence: BR)
  Receive Date: 20180107
  Receipt Date: 20181003
  Transmission Date: 20190204
  Serious: Yes (Hospitalization, Other)
  Sender: FDA-Public Use
  Company Number: BR-SHIRE-BR201732562

PATIENT

DRUGS (2)
  1. ELAPRASE [Suspect]
     Active Substance: IDURSULFASE
     Indication: MUCOPOLYSACCHARIDOSIS II
     Dosage: 2 VIALS IN EACH INFUSION
     Route: 065
     Dates: start: 2014
  2. ELAPRASE [Suspect]
     Active Substance: IDURSULFASE
     Dosage: UNK UNK, 1X/WEEK
     Route: 042
     Dates: start: 2014

REACTIONS (14)
  - Carpal tunnel syndrome [Unknown]
  - Lip disorder [Unknown]
  - Psychomotor hyperactivity [Unknown]
  - Abnormal behaviour [Unknown]
  - Limb discomfort [Unknown]
  - Pectus excavatum [Unknown]
  - Influenza [Unknown]
  - Umbilical hernia [Unknown]
  - Musculoskeletal stiffness [Unknown]
  - Macroglossia [Unknown]
  - Speech disorder developmental [Recovering/Resolving]
  - Nasal disorder [Unknown]
  - Infection [Unknown]
  - Pneumonia [Unknown]

NARRATIVE: CASE EVENT DATE: 200701
